FAERS Safety Report 24001529 (Version 4)
Quarter: 2024Q4

REPORT INFORMATION
  Report Type: Spontaneous
  Country: JP (occurrence: JP)
  Receive Date: 20240621
  Receipt Date: 20241031
  Transmission Date: 20250114
  Serious: Yes (Hospitalization)
  Sender: ELI LILLY AND COMPANY
  Company Number: JP-ELI_LILLY_AND_COMPANY-JP202406007619

PATIENT
  Age: 38 Year
  Sex: Male
  Weight: 74 kg

DRUGS (9)
  1. TALTZ [Suspect]
     Active Substance: IXEKIZUMAB
     Indication: Psoriatic arthropathy
     Dosage: 80 MG, UNKNOWN
     Route: 058
     Dates: start: 20240315, end: 20240419
  2. BETAMETHASONE DIPROPIONATE [Concomitant]
     Active Substance: BETAMETHASONE DIPROPIONATE
     Indication: Psoriatic arthropathy
     Dosage: UNK
     Route: 061
     Dates: start: 20240216
  3. NADIFLOXACIN [Concomitant]
     Active Substance: NADIFLOXACIN
     Indication: Psoriatic arthropathy
     Dosage: UNK
     Route: 061
     Dates: start: 20240315
  4. DICLOFENAC [Concomitant]
     Active Substance: DICLOFENAC
     Indication: Psoriatic arthropathy
     Dosage: 100 MG
     Route: 048
  5. DAPAGLIFLOZIN [Concomitant]
     Active Substance: DAPAGLIFLOZIN
     Indication: Cardiac failure congestive
     Dosage: 10 MG
     Route: 048
     Dates: start: 20240123
  6. EPLERENONE [Concomitant]
     Active Substance: EPLERENONE
     Indication: Cardiac failure congestive
     Dosage: 50 MG
     Route: 048
     Dates: start: 20240123
  7. BISOPROLOL FUMARATE [Concomitant]
     Active Substance: BISOPROLOL FUMARATE
     Indication: Cardiac failure congestive
     Dosage: 2.5 MG
     Route: 048
     Dates: start: 20240126
  8. ENALAPRIL [Concomitant]
     Active Substance: ENALAPRIL
     Indication: Cardiac failure congestive
     Dosage: 5 MG
     Route: 048
     Dates: start: 20240216
  9. LANSOPRAZOLE [Concomitant]
     Active Substance: LANSOPRAZOLE
     Indication: Prophylaxis
     Dosage: 15 MG
     Route: 048
     Dates: start: 20240315

REACTIONS (3)
  - Arthritis bacterial [Recovered/Resolved]
  - Septic shock [Recovered/Resolved]
  - Off label use [Unknown]

NARRATIVE: CASE EVENT DATE: 20240315
